FAERS Safety Report 21563854 (Version 1)
Quarter: 2022Q4

REPORT INFORMATION
  Report Type: Spontaneous
  Country: US (occurrence: US)
  Receive Date: 20221108
  Receipt Date: 20221108
  Transmission Date: 20230112
  Serious: No
  Sender: FDA-Public Use
  Company Number: US-drreddys-SPO/USA/22/0156130

PATIENT
  Age: 44 Year
  Sex: Female

DRUGS (1)
  1. OMEPRAZOLE [Suspect]
     Active Substance: OMEPRAZOLE
     Indication: Gastrooesophageal reflux disease

REACTIONS (4)
  - Gait disturbance [Unknown]
  - Hypotension [Unknown]
  - Skin burning sensation [Unknown]
  - Arthropathy [Unknown]

NARRATIVE: CASE EVENT DATE: 20221009
